FAERS Safety Report 12532096 (Version 1)
Quarter: 2016Q3

REPORT INFORMATION
  Report Type: Spontaneous
  Country: GB (occurrence: GB)
  Receive Date: 20160706
  Receipt Date: 20160706
  Transmission Date: 20161109
  Serious: Yes (Hospitalization, Other)
  Sender: FDA-Public Use
  Company Number: GB-WATSON-2016-14530

PATIENT
  Age: 30 Year
  Sex: Female

DRUGS (3)
  1. CLOZAPINE (UNKNOWN) [Suspect]
     Active Substance: CLOZAPINE
     Indication: SCHIZOPHRENIA
     Dosage: TAPERED TO 100 MG, DAILY
     Route: 065
  2. RIFAMPICIN (UNKNOWN) [Interacting]
     Active Substance: RIFAMPIN
     Indication: ACNE
     Dosage: 300 MG, BID
     Route: 065
  3. AMISULPRIDE [Concomitant]
     Active Substance: AMISULPRIDE
     Indication: SCHIZOPHRENIA
     Dosage: UNK
     Route: 065

REACTIONS (2)
  - Drug interaction [Recovered/Resolved]
  - Schizophrenia [Recovered/Resolved]
